FAERS Safety Report 25529688 (Version 1)
Quarter: 2025Q3

REPORT INFORMATION
  Report Type: Spontaneous
  Country: EU (occurrence: EU)
  Receive Date: 20250708
  Receipt Date: 20250708
  Transmission Date: 20251020
  Serious: Yes (Hospitalization)
  Sender: CHEPLAPHARM
  Company Number: None

PATIENT
  Age: 33 Year
  Sex: Male
  Weight: 42 kg

DRUGS (9)
  1. OLANZAPINE [Suspect]
     Active Substance: OLANZAPINE
     Route: 048
     Dates: start: 202501, end: 202501
  2. BISOPROLOL FUMARATE [Suspect]
     Active Substance: BISOPROLOL FUMARATE
     Route: 048
     Dates: start: 202501, end: 202501
  3. LEVOMEPROMAZINE HYDROCHLORIDE [Suspect]
     Active Substance: LEVOMEPROMAZINE HYDROCHLORIDE
     Route: 048
     Dates: start: 202501, end: 202501
  4. FUROSEMIDE [Concomitant]
     Active Substance: FUROSEMIDE
     Route: 048
     Dates: start: 202501, end: 202501
  5. ALFUZOSIN [Concomitant]
     Active Substance: ALFUZOSIN
     Dosage: 0-0-1?DAILY DOSE: 10 MILLIGRAM
  6. CLONAZEPAM [Concomitant]
     Active Substance: CLONAZEPAM
  7. DIAZEPAM [Concomitant]
     Active Substance: DIAZEPAM
  8. LAMOTRIGINE [Concomitant]
     Active Substance: LAMOTRIGINE
  9. METOPIMAZINE [Concomitant]
     Active Substance: METOPIMAZINE

REACTIONS (2)
  - Epilepsy [Recovered/Resolved]
  - Product administration error [Recovered/Resolved]

NARRATIVE: CASE EVENT DATE: 20250101
